FAERS Safety Report 5267221-X (Version None)
Quarter: 2007Q1

REPORT INFORMATION
  Report Type: 
  Country: None (occurrence: None)
  Receive Date: 20070313
  Receipt Date: 20070227
  Transmission Date: 20070707
  Serious: Yes (Other)
  Sender: FDA-Public Use
  Company Number: 2007PV030582

PATIENT
  Age: 62 Year
  Sex: Female

DRUGS (8)
  1. BYETTA [Suspect]
     Indication: DIABETES MELLITUS NON-INSULIN-DEPENDENT
     Dosage: SC
     Route: 058
     Dates: start: 20060411
  2. BENICAR [Concomitant]
  3. ASPIRIN [Concomitant]
  4. AVANDIA [Concomitant]
  5. GLYBURIDE [Concomitant]
  6. HYDROCHLOROTHIAZIDE [Concomitant]
  7. LIPITOR [Concomitant]
  8. TRICOR [Concomitant]

REACTIONS (5)
  - METASTASES TO LIVER [None]
  - METASTASES TO LUNG [None]
  - METASTASES TO PANCREAS [None]
  - METASTATIC MALIGNANT MELANOMA [None]
  - PANCREATITIS [None]
